APPROVED DRUG PRODUCT: PIOGLITAZONE HYDROCHLORIDE
Active Ingredient: PIOGLITAZONE HYDROCHLORIDE
Strength: EQ 30MG BASE
Dosage Form/Route: TABLET;ORAL
Application: A078383 | Product #002
Applicant: CHARTWELL RX SCIENCES LLC
Approved: Mar 12, 2013 | RLD: No | RS: No | Type: DISCN